FAERS Safety Report 25184083 (Version 2)
Quarter: 2025Q4

REPORT INFORMATION
  Report Type: Spontaneous
  Country: JP (occurrence: JP)
  Receive Date: 20250410
  Receipt Date: 20251028
  Transmission Date: 20260117
  Serious: Yes (Hospitalization)
  Sender: BAYER HEALTHCARE PHARMACEUTICALS INC.
  Company Number: JP-BAYER-2025A048005

PATIENT
  Age: 40 Year
  Sex: Female
  Weight: 57.9 kg

DRUGS (9)
  1. ADEMPAS [Suspect]
     Active Substance: RIOCIGUAT
     Indication: Pulmonary hypertension
     Dosage: 3.0MG
     Route: 048
  2. ADEMPAS [Suspect]
     Active Substance: RIOCIGUAT
     Indication: Pulmonary hypertension
     Dosage: 4.5MG
     Route: 048
  3. ADEMPAS [Suspect]
     Active Substance: RIOCIGUAT
     Indication: Pulmonary hypertension
     Dosage: 6.0MG
     Route: 048
  4. ADEMPAS [Suspect]
     Active Substance: RIOCIGUAT
     Indication: Pulmonary hypertension
     Dosage: 2.5 MG, TID
     Route: 048
  5. DROSPIRENONE [Suspect]
     Active Substance: DROSPIRENONE
  6. APIXABAN [Concomitant]
     Active Substance: APIXABAN
     Dosage: DAILY DOSE 20 MG
     Route: 048
  7. APIXABAN [Concomitant]
     Active Substance: APIXABAN
     Dosage: DAILY DOSE 10 MG
     Route: 048
  8. RELUGOLIX [Concomitant]
     Active Substance: RELUGOLIX
  9. HEPARIN SODIUM [Concomitant]
     Active Substance: HEPARIN SODIUM
     Dosage: 5000 UNITS
     Route: 042

REACTIONS (5)
  - Pulmonary embolism [None]
  - Palpitations [None]
  - Dyspnoea [None]
  - Oxygen saturation decreased [None]
  - Genital haemorrhage [None]

NARRATIVE: CASE EVENT DATE: 20230101
